FAERS Safety Report 8471437-9 (Version None)
Quarter: 2012Q2

REPORT INFORMATION
  Report Type: 
  Country: None (occurrence: None)
  Receive Date: 20120627
  Receipt Date: 20120621
  Transmission Date: 20120825
  Serious: Yes (Other)
  Sender: FDA-Public Use
  Company Number: PHHY2012CA053775

PATIENT
  Sex: Female

DRUGS (1)
  1. TASIGNA [Suspect]
     Dosage: UNK
     Route: 048
     Dates: start: 20120406

REACTIONS (3)
  - ERYTHEMA OF EYELID [None]
  - LACRIMAL DISORDER [None]
  - PAPILLOMA CONJUNCTIVAL [None]
